FAERS Safety Report 9127102 (Version 1)
Quarter: 2013Q1

REPORT INFORMATION
  Report Type: Spontaneous
  Country: US (occurrence: US)
  Receive Date: 20130122
  Receipt Date: 20130122
  Transmission Date: 20140127
  Serious: No
  Sender: FDA-Public Use
  Company Number: US-MYLANLABS-2012S1004636

PATIENT
  Age: 63 Year
  Sex: Female
  Weight: 100.7 kg

DRUGS (5)
  1. LETROZOLE [Suspect]
     Indication: BREAST CANCER
     Route: 048
     Dates: start: 201106, end: 20111024
  2. LETROZOLE [Suspect]
     Indication: BREAST CANCER
     Route: 048
     Dates: start: 201112, end: 201112
  3. SYNTHROID [Concomitant]
     Indication: AUTOIMMUNE THYROIDITIS
  4. ATENOLOL [Concomitant]
     Indication: BLOOD PRESSURE
  5. ASPIRIN [Concomitant]

REACTIONS (16)
  - Drug effect increased [Recovered/Resolved]
  - Suicidal ideation [Recovered/Resolved]
  - Depression [Recovered/Resolved]
  - Arthralgia [Recovered/Resolved]
  - Arthralgia [Recovered/Resolved]
  - Gait disturbance [Recovered/Resolved]
  - Musculoskeletal stiffness [Recovered/Resolved]
  - Sensation of heaviness [Recovered/Resolved]
  - Local swelling [Recovered/Resolved]
  - Arteriosclerosis [Not Recovered/Not Resolved]
  - Pain in extremity [Recovered/Resolved]
  - Intervertebral disc disorder [Not Recovered/Not Resolved]
  - Joint stiffness [Recovered/Resolved]
  - Hypoaesthesia [Recovered/Resolved]
  - Muscle spasms [Recovered/Resolved]
  - Myalgia [Recovered/Resolved]
